FAERS Safety Report 24356498 (Version 1)
Quarter: 2024Q3

REPORT INFORMATION
  Report Type: Report from Study
  Country: TW (occurrence: TW)
  Receive Date: 20240924
  Receipt Date: 20240924
  Transmission Date: 20241016
  Serious: Yes (Death, Other)
  Sender: JOHNSON AND JOHNSON
  Company Number: TW-JNJFOC-20240948160

PATIENT

DRUGS (2)
  1. CONCERTA [Suspect]
     Active Substance: METHYLPHENIDATE HYDROCHLORIDE
     Indication: Attention deficit hyperactivity disorder
     Route: 065
  2. ASPIRIN [Concomitant]
     Active Substance: ASPIRIN

REACTIONS (5)
  - Cardiac death [Fatal]
  - Cardiogenic shock [Unknown]
  - Cerebrovascular accident [Unknown]
  - Acute coronary syndrome [Unknown]
  - Arrhythmia [Unknown]
